FAERS Safety Report 9714461 (Version 1)
Quarter: 2013Q4

REPORT INFORMATION
  Report Type: Spontaneous
  Country: US (occurrence: US)
  Receive Date: 20131126
  Receipt Date: 20131126
  Transmission Date: 20140711
  Serious: No
  Sender: FDA-Public Use
  Company Number: US-BIOGENIDEC-2013BI082685

PATIENT
  Sex: Female

DRUGS (3)
  1. TECFIDERA [Suspect]
     Indication: MULTIPLE SCLEROSIS
     Route: 048
     Dates: start: 20130623, end: 20130629
  2. TECFIDERA [Suspect]
     Indication: MULTIPLE SCLEROSIS
     Route: 048
     Dates: start: 20130630
  3. AVONEX [Concomitant]
     Indication: MULTIPLE SCLEROSIS
     Route: 030
     Dates: start: 20071201

REACTIONS (23)
  - Tinnitus [Recovered/Resolved with Sequelae]
  - Dysphagia [Recovered/Resolved with Sequelae]
  - Constipation [Recovered/Resolved with Sequelae]
  - Saliva altered [Recovered/Resolved with Sequelae]
  - Cough [Recovered/Resolved with Sequelae]
  - Choking [Recovered/Resolved with Sequelae]
  - Hypoaesthesia [Unknown]
  - Paraesthesia [Unknown]
  - Discomfort [Unknown]
  - Vision blurred [Unknown]
  - Diplopia [Unknown]
  - Abdominal distension [Unknown]
  - Dry mouth [Unknown]
  - Joint swelling [Unknown]
  - Oropharyngeal pain [Unknown]
  - Sensitivity of teeth [Unknown]
  - Ear disorder [Unknown]
  - Back pain [Unknown]
  - Rhinorrhoea [Unknown]
  - Muscle tone disorder [Unknown]
  - Visual impairment [Unknown]
  - Dyspepsia [Unknown]
  - Flushing [Unknown]
